FAERS Safety Report 17563099 (Version 16)
Quarter: 2021Q2

REPORT INFORMATION
  Report Type: Report from Study
  Country: CA (occurrence: CA)
  Receive Date: 20200319
  Receipt Date: 20210603
  Transmission Date: 20210716
  Serious: Yes (Other)
  Sender: FDA-Public Use
  Company Number: CA-BAUSCH-BL-2019-064621

PATIENT
  Age: 50 Year
  Sex: Female
  Weight: 88.53 kg

DRUGS (8)
  1. SILIQ [Suspect]
     Active Substance: BRODALUMAB
     Indication: PSORIASIS
     Dosage: 210MG/ 1.5 ML, WEEK 0,1,2
     Route: 058
     Dates: start: 20191203, end: 20191217
  2. METHOTREXATE. [Suspect]
     Active Substance: METHOTREXATE
     Indication: ARTHRALGIA
     Route: 065
     Dates: end: 2020
  3. FOLIC ACID. [Concomitant]
     Active Substance: FOLIC ACID
     Indication: ARTHRALGIA
  4. CELECOXIB. [Concomitant]
     Active Substance: CELECOXIB
     Indication: PRODUCT USED FOR UNKNOWN INDICATION
     Route: 048
     Dates: start: 20210312
  5. SILIQ [Suspect]
     Active Substance: BRODALUMAB
     Dosage: 210MG/ 1.5 ML
     Route: 058
     Dates: start: 2020
  6. METHOTREXATE. [Suspect]
     Active Substance: METHOTREXATE
     Indication: PSORIASIS
     Route: 065
     Dates: end: 201910
  7. METHOTREXATE. [Suspect]
     Active Substance: METHOTREXATE
     Route: 065
     Dates: start: 2020, end: 2020
  8. METHOTREXATE. [Suspect]
     Active Substance: METHOTREXATE
     Route: 065
     Dates: start: 2020

REACTIONS (19)
  - Polyp [Unknown]
  - Skin laceration [Unknown]
  - Blood pressure increased [Unknown]
  - Endodontic procedure [Unknown]
  - Stress [Not Recovered/Not Resolved]
  - Psoriasis [Not Recovered/Not Resolved]
  - Injection site mass [Recovered/Resolved]
  - Injection site pain [Unknown]
  - Feeling abnormal [Unknown]
  - Body temperature decreased [Unknown]
  - Injection site bruising [Unknown]
  - Onychalgia [Not Recovered/Not Resolved]
  - Hepatic lesion [Unknown]
  - Injection site urticaria [Unknown]
  - Gait disturbance [Not Recovered/Not Resolved]
  - Pruritus [Unknown]
  - Ill-defined disorder [Not Recovered/Not Resolved]
  - Drug ineffective [Unknown]
  - Liver function test increased [Not Recovered/Not Resolved]

NARRATIVE: CASE EVENT DATE: 201912
